FAERS Safety Report 22274551 (Version 1)
Quarter: 2023Q2

REPORT INFORMATION
  Report Type: Spontaneous
  Country: US (occurrence: US)
  Receive Date: 20230502
  Receipt Date: 20230502
  Transmission Date: 20230721
  Serious: Yes (Other)
  Sender: FDA-Public Use
  Company Number: US-MEDEXUS PHARMA, INC.-2023MED00160

PATIENT
  Sex: Female

DRUGS (6)
  1. RASUVO [Suspect]
     Active Substance: METHOTREXATE SODIUM
     Indication: Rheumatoid arthritis
     Dosage: 25 MG, INJECTED 1X/WEEK ON MONDAYS TO THIGH OR STOMACH
     Dates: start: 2019
  2. PLAQUENIL [Concomitant]
     Active Substance: HYDROXYCHLOROQUINE SULFATE
     Dosage: 1 TABLET, 1X/DAY
  3. CENTRUM SILVER [ASCORBIC ACID;BETACAROTENE;BIOTIN;CALCIUM PHOSPHATE;CH [Concomitant]
     Dosage: UNK, 1X/DAY
  4. 2 DIFFERENT D VITAMINS [Concomitant]
     Dosage: UNK, 1X/DAY
  5. UNSPECIFIED EYE VITAMIN [Concomitant]
     Dosage: UNK, 1X/DAY
  6. FORTEO [Concomitant]
     Active Substance: TERIPARATIDE
     Dosage: UNK, 1X/DAY

REACTIONS (9)
  - Ankle fracture [Not Recovered/Not Resolved]
  - Wrist fracture [Unknown]
  - Fractured sacrum [Unknown]
  - Stress fracture [Unknown]
  - Impaired healing [Not Recovered/Not Resolved]
  - Injection site pain [Not Recovered/Not Resolved]
  - Discomfort [Not Recovered/Not Resolved]
  - Injection site erythema [Not Recovered/Not Resolved]
  - Skin ulcer [Not Recovered/Not Resolved]

NARRATIVE: CASE EVENT DATE: 20190101
